FAERS Safety Report 8840736 (Version 2)
Quarter: 2012Q4

REPORT INFORMATION
  Report Type: Report from Study
  Country: US (occurrence: US)
  Receive Date: 20121015
  Receipt Date: 20121018
  Transmission Date: 20130627
  Serious: Yes (Life-Threatening)
  Sender: FDA-Public Use
  Company Number: US-US-EMD SERONO, INC.-7167476

PATIENT
  Age: 45 Year
  Sex: Female

DRUGS (3)
  1. REBIF [Suspect]
     Indication: PRODUCT USED FOR UNKNOWN INDICATION
     Route: 058
     Dates: start: 20110715, end: 20120817
  2. REBIF [Suspect]
     Route: 058
     Dates: start: 20120831
  3. MORPHINE [Suspect]
     Indication: PROCEDURAL PAIN
     Dates: start: 20120824

REACTIONS (1)
  - Respiratory arrest [Recovered/Resolved]
